FAERS Safety Report 22161799 (Version 1)
Quarter: 2023Q1

REPORT INFORMATION
  Report Type: Report from Study
  Country: US (occurrence: US)
  Receive Date: 20230331
  Receipt Date: 20230331
  Transmission Date: 20230418
  Serious: Yes (Hospitalization, Other)
  Sender: FDA-Public Use
  Company Number: US-GILEAD-2023-0622379

PATIENT
  Age: 21 Year
  Sex: Female

DRUGS (7)
  1. AZTREONAM LYSINE [Suspect]
     Active Substance: AZTREONAM LYSINE
     Indication: Cystic fibrosis
     Dosage: 75 MG, TID, 75MG INHAL SOL. INHALE 75M G VIA NEBULIZER 3X DAILY FOR 28 DAYS ON AND 28 DAYS OFF..
     Route: 055
     Dates: start: 20131203
  2. ENZYME DIGEST [Concomitant]
  3. TOBRAMYCIN [Concomitant]
     Active Substance: TOBRAMYCIN
  4. ZINC [Concomitant]
     Active Substance: ZINC
  5. SULFAMETHOXAZOLE\TRIMETHOPRIM [Concomitant]
     Active Substance: SULFAMETHOXAZOLE\TRIMETHOPRIM
  6. LEVOFLOXACIN [Concomitant]
     Active Substance: LEVOFLOXACIN
  7. VITAMIN D3 [Concomitant]
     Active Substance: CHOLECALCIFEROL

REACTIONS (1)
  - Cystic fibrosis respiratory infection suppression [Not Recovered/Not Resolved]
